FAERS Safety Report 15504549 (Version 1)
Quarter: 2018Q4

REPORT INFORMATION
  Report Type: Spontaneous
  Country: US (occurrence: US)
  Receive Date: 20181009
  Receipt Date: 20181009
  Transmission Date: 20190205
  Serious: Yes (Other)
  Sender: FDA-Public Use
  Company Number: None

PATIENT
  Age: 25 Year
  Sex: Female
  Weight: 56.7 kg

DRUGS (3)
  1. GENERIC RISPERIDONE [Suspect]
     Active Substance: RISPERIDONE
     Indication: BIPOLAR DISORDER
  2. GENERIC RISPERIDONE [Suspect]
     Active Substance: RISPERIDONE
     Indication: AGGRESSION
  3. GENERIC RISPERIDONE [Suspect]
     Active Substance: RISPERIDONE
     Indication: MANIA

REACTIONS (5)
  - Psychomotor hyperactivity [None]
  - Product substitution issue [None]
  - Grandiosity [None]
  - Agitation [None]
  - Aggression [None]

NARRATIVE: CASE EVENT DATE: 20081015
